FAERS Safety Report 20839406 (Version 1)
Quarter: 2022Q2

REPORT INFORMATION
  Report Type: Spontaneous
  Country: US (occurrence: US)
  Receive Date: 20220517
  Receipt Date: 20220517
  Transmission Date: 20220721
  Serious: No
  Sender: FDA-Public Use
  Company Number: US-PFIZER INC-202100999987

PATIENT
  Age: 50 Year
  Sex: Female

DRUGS (9)
  1. ENBREL [Suspect]
     Active Substance: ETANERCEPT
     Indication: Rheumatoid arthritis
     Dosage: UNK
     Route: 065
  2. LOSARTAN POTASSIUM JG [Concomitant]
  3. BYSTOLIC [Concomitant]
     Active Substance: NEBIVOLOL HYDROCHLORIDE
  4. FOLIC ACID DC [Concomitant]
  5. CYANOCOBALAMIN [Concomitant]
     Active Substance: CYANOCOBALAMIN
  6. ZINC C [Concomitant]
  7. POTASSIUM ACETATE [Concomitant]
     Active Substance: POTASSIUM ACETATE
  8. CHOLECALCIFEROL [Concomitant]
     Active Substance: CHOLECALCIFEROL
  9. ASCORBIC ACID [Concomitant]
     Active Substance: ASCORBIC ACID

REACTIONS (1)
  - Drug ineffective [Unknown]
